FAERS Safety Report 8369583-3 (Version None)
Quarter: 2012Q2

REPORT INFORMATION
  Report Type: 
  Country: None (occurrence: None)
  Receive Date: 20120517
  Receipt Date: 20120517
  Transmission Date: 20120825
  Serious: Yes (Death)
  Sender: FDA-Public Use
  Company Number: None

PATIENT
  Age: 68 Year
  Sex: Female

DRUGS (3)
  1. LUCENTIS [Suspect]
     Indication: RETINAL VEIN OCCLUSION
     Dosage: 1 4 WEEKS INTRAOCULAR
     Route: 031
     Dates: start: 20120330, end: 20120423
  2. LUCENTIS [Suspect]
     Indication: MACULAR OEDEMA
     Dosage: 1 4 WEEKS INTRAOCULAR
     Route: 031
     Dates: start: 20120330, end: 20120423
  3. LUCENTIS [Suspect]

REACTIONS (1)
  - DEATH [None]
